FAERS Safety Report 6923947-0 (Version None)
Quarter: 2010Q3

REPORT INFORMATION
  Report Type: 
  Country: None (occurrence: None)
  Receive Date: 20100813
  Receipt Date: 20100803
  Transmission Date: 20110219
  Serious: Yes (Disabling)
  Sender: FDA-Public Use
  Company Number: US-ELI_LILLY_AND_COMPANY-US201008001191

PATIENT
  Sex: Male

DRUGS (2)
  1. HUMALOG [Suspect]
     Dosage: UNK, 3/D
  2. LANTUS [Concomitant]

REACTIONS (6)
  - BLOOD GLUCOSE INCREASED [None]
  - HAND DEFORMITY [None]
  - INJECTION SITE PAIN [None]
  - PAIN [None]
  - PSORIATIC ARTHROPATHY [None]
  - WRONG TECHNIQUE IN DRUG USAGE PROCESS [None]
